FAERS Safety Report 6920297-3 (Version None)
Quarter: 2010Q3

REPORT INFORMATION
  Report Type: 
  Country: None (occurrence: None)
  Receive Date: 20100809
  Receipt Date: 20100723
  Transmission Date: 20110219
  Serious: Yes (Other)
  Sender: FDA-Public Use
  Company Number: AUR-APU-2010-01855

PATIENT
  Age: 57 Year
  Sex: Male

DRUGS (2)
  1. CIPROFLOXACIN [Suspect]
     Indication: PROSTATIC SPECIFIC ANTIGEN INCREASED
     Dosage: 500 MG, TWICE DAILY
     Dates: start: 20100521, end: 20100531
  2. ACYCLOVIR [Concomitant]

REACTIONS (8)
  - ARTHROPATHY [None]
  - CHONDROCALCINOSIS PYROPHOSPHATE [None]
  - CONDITION AGGRAVATED [None]
  - EXOSTOSIS [None]
  - GAIT DISTURBANCE [None]
  - MYALGIA [None]
  - TENDONITIS [None]
  - WEIGHT DECREASED [None]
